FAERS Safety Report 12384261 (Version 1)
Quarter: 2016Q2

REPORT INFORMATION
  Report Type: Spontaneous
  Country: US (occurrence: None)
  Receive Date: 20160518
  Receipt Date: 20160518
  Transmission Date: 20160815
  Serious: Yes (Other)
  Sender: FDA-Public Use
  Company Number: None

PATIENT
  Age: 57 Year
  Sex: Female

DRUGS (1)
  1. HUMIRA [Suspect]
     Active Substance: ADALIMUMAB
     Indication: PSORIATIC ARTHROPATHY
     Dosage: 40 MG EVERY 2 WEEKS SQ - PEN
     Route: 058
     Dates: start: 20160423, end: 20160516

REACTIONS (2)
  - Nausea [None]
  - Heart rate increased [None]

NARRATIVE: CASE EVENT DATE: 20160515
